FAERS Safety Report 6442883-X (Version None)
Quarter: 2009Q4

REPORT INFORMATION
  Report Type: 
  Country: None (occurrence: None)
  Receive Date: 20091117
  Receipt Date: 20091103
  Transmission Date: 20100525
  Serious: Yes (Hospitalization)
  Sender: FDA-Public Use
  Company Number: SI-CELGENEUS-261-21880-09100026

PATIENT
  Sex: Female

DRUGS (2)
  1. REVLIMID [Suspect]
     Indication: MULTIPLE MYELOMA
     Route: 048
     Dates: start: 20080816
  2. REVLIMID [Suspect]
     Route: 048
     Dates: start: 20081020, end: 20090115

REACTIONS (5)
  - ATRIAL FIBRILLATION [None]
  - DERMATITIS ALLERGIC [None]
  - PANCYTOPENIA [None]
  - PYREXIA [None]
  - RENAL FAILURE [None]
